FAERS Safety Report 10228595 (Version 3)
Quarter: 2015Q2

REPORT INFORMATION
  Report Type: Spontaneous
  Country: US (occurrence: US)
  Receive Date: 20140610
  Receipt Date: 20150514
  Transmission Date: 20150821
  Serious: Yes (Hospitalization)
  Sender: FDA-Public Use
  Company Number: US-BAYER-2014-084835

PATIENT
  Age: 27 Year
  Sex: Female
  Weight: 54.88 kg

DRUGS (14)
  1. HYDROCODONE [Concomitant]
     Active Substance: HYDROCODONE
  2. OCELLA [Suspect]
     Active Substance: DROSPIRENONE\ETHINYL ESTRADIOL
     Dosage: UNK
     Dates: start: 20080717, end: 2008
  3. ANTIVERT [Concomitant]
     Active Substance: MECLIZINE HYDROCHLORIDE
     Indication: DIZZINESS
  4. LEVAQUIN [Concomitant]
     Active Substance: LEVOFLOXACIN
  5. VALIUM [Concomitant]
     Active Substance: DIAZEPAM
  6. ANTIVERT [Concomitant]
     Active Substance: MECLIZINE HYDROCHLORIDE
     Indication: NAUSEA
  7. ECOTRIN [Concomitant]
     Active Substance: ASPIRIN
  8. PROTONIX [Concomitant]
     Active Substance: PANTOPRAZOLE SODIUM
  9. MORPHINE [Concomitant]
     Active Substance: MORPHINE
  10. YASMIN [Suspect]
     Active Substance: DROSPIRENONE\ETHINYL ESTRADIOL
     Dosage: UNK
     Dates: start: 2004, end: 200806
  11. PANTOPRAZOLE [Concomitant]
     Active Substance: PANTOPRAZOLE SODIUM
     Dosage: 40 MG, UNK
     Dates: start: 20080811
  12. NORMAL SALINE [Concomitant]
     Active Substance: SODIUM CHLORIDE
  13. ZOFRAN [Concomitant]
     Active Substance: ONDANSETRON HYDROCHLORIDE
     Indication: NAUSEA
  14. ZOFRAN [Concomitant]
     Active Substance: ONDANSETRON HYDROCHLORIDE
     Indication: DIZZINESS

REACTIONS (8)
  - General physical health deterioration [None]
  - Thrombosis [None]
  - Abdominal pain [None]
  - Activities of daily living impaired [None]
  - Cerebrovascular accident [None]
  - Musculoskeletal disorder [None]
  - Pain [None]
  - Injury [None]

NARRATIVE: CASE EVENT DATE: 200808
